FAERS Safety Report 20687444 (Version 1)
Quarter: 2022Q2

REPORT INFORMATION
  Report Type: Spontaneous
  Country: US (occurrence: US)
  Receive Date: 20220408
  Receipt Date: 20220408
  Transmission Date: 20220721
  Serious: No
  Sender: FDA-Public Use
  Company Number: US-TEVA-2022-US-2017389

PATIENT
  Age: 35 Year
  Sex: Female

DRUGS (1)
  1. JUNEL FE 1/20 [Suspect]
     Active Substance: ETHINYL ESTRADIOL\NORETHINDRONE ACETATE
     Indication: Contraception
     Dosage: JUNEL FE 1/20 OR 1.5/30
     Route: 065
     Dates: start: 2018

REACTIONS (7)
  - Dysmenorrhoea [Unknown]
  - Intermenstrual bleeding [Recovered/Resolved with Sequelae]
  - Adverse reaction [Unknown]
  - Cold sweat [Unknown]
  - Nausea [Unknown]
  - Menstruation irregular [Not Recovered/Not Resolved]
  - Abdominal discomfort [Unknown]

NARRATIVE: CASE EVENT DATE: 20220224
